FAERS Safety Report 24255161 (Version 1)
Quarter: 2024Q3

REPORT INFORMATION
  Report Type: Spontaneous
  Country: US (occurrence: None)
  Receive Date: 20240827
  Receipt Date: 20240827
  Transmission Date: 20241017
  Serious: Yes (Death, Hospitalization)
  Sender: Public
  Company Number: None

PATIENT
  Sex: Male
  Weight: 71.9 kg

DRUGS (3)
  1. BINIMETINIB [Suspect]
     Active Substance: BINIMETINIB
  2. ENCORAFENIB [Concomitant]
     Active Substance: ENCORAFENIB
  3. NIVOLUMAB [Concomitant]
     Active Substance: NIVOLUMAB

REACTIONS (2)
  - Metastatic malignant melanoma [None]
  - Condition aggravated [None]

NARRATIVE: CASE EVENT DATE: 20231223
